FAERS Safety Report 7218534-3 (Version None)
Quarter: 2011Q1

REPORT INFORMATION
  Report Type: 
  Country: None (occurrence: None)
  Receive Date: 20110110
  Receipt Date: 20110104
  Transmission Date: 20110831
  Serious: Yes (Life-Threatening)
  Sender: FDA-Public Use
  Company Number: FR-PFIZER INC-2010176445

PATIENT
  Age: 50 Year
  Sex: Male

DRUGS (6)
  1. VFEND [Suspect]
     Indication: BRONCHOPULMONARY ASPERGILLOSIS
     Dosage: 200 MG, 2X/DAY
     Route: 048
     Dates: start: 20040201, end: 20081215
  2. CORTANCYL [Concomitant]
     Indication: PULMONARY SARCOIDOSIS
     Dosage: 10 MG, 1X/DAY
     Route: 048
     Dates: start: 19740601, end: 20091228
  3. SALBUTAMOL [Concomitant]
  4. POSACONAZOLE [Concomitant]
     Dosage: UNK
     Dates: start: 20081201, end: 20091201
  5. RAMIPRIL [Concomitant]
  6. BUDESONIDE [Concomitant]

REACTIONS (3)
  - PHOTOSENSITIVITY REACTION [None]
  - SQUAMOUS CELL CARCINOMA [None]
  - ACTINIC KERATOSIS [None]
